FAERS Safety Report 8766701 (Version 1)
Quarter: 2012Q4

REPORT INFORMATION
  Report Type: 
  Country: FR (occurrence: FR)
  Receive Date: 20120904
  Receipt Date: 20120904
  Transmission Date: 20130627
  Serious: Yes (Death, Hospitalization)
  Sender: FDA-Public Use
  Company Number: FR-SANOFI-AVENTIS-2012SA063124

PATIENT
  Age: 78 Year
  Sex: Male

DRUGS (16)
  1. RIFADINE [Suspect]
     Indication: SEPTIC ARTHRITIS
     Route: 042
     Dates: start: 20120604, end: 20120610
  2. TAVANIC [Suspect]
     Indication: SEPTIC ARTHRITIS
     Route: 042
     Dates: start: 20120607, end: 20120608
  3. TAVANIC [Suspect]
     Indication: SEPTIC ARTHRITIS
     Route: 048
     Dates: start: 20120610, end: 20120629
  4. GENTAMICIN [Suspect]
     Indication: SEPTIC ARTHRITIS
     Route: 042
     Dates: start: 20120601, end: 20120604
  5. DALACIN [Suspect]
     Indication: SEPTIC ARTHRITIS
     Route: 048
     Dates: start: 20120625
  6. PIPERACILLIN [Suspect]
     Indication: SEPTIC ARTHRITIS
     Route: 042
     Dates: start: 20120629
  7. CEFOTAXIM [Suspect]
     Indication: SEPTIC ARTHRITIS
     Route: 042
     Dates: start: 20120625, end: 20120627
  8. CEFOTAXIME [Suspect]
     Indication: SEPTIC ARTHRITIS
     Route: 042
     Dates: start: 20120601, end: 20120607
  9. COVERSYL [Concomitant]
  10. KALEORID [Concomitant]
  11. NEBIVOLOL [Concomitant]
  12. LASILIX [Concomitant]
  13. PARIET [Concomitant]
  14. FERROUS SULFATE [Concomitant]
  15. PRAXILENE [Concomitant]
  16. PREVISCAN [Concomitant]

REACTIONS (4)
  - Renal failure acute [Fatal]
  - Hyperkalaemia [Fatal]
  - Oliguria [Fatal]
  - Tubulointerstitial nephritis [Fatal]
